FAERS Safety Report 6170959-3 (Version None)
Quarter: 2009Q2

REPORT INFORMATION
  Report Type: 
  Country: None (occurrence: None)
  Receive Date: 20090427
  Receipt Date: 20090427
  Transmission Date: 20091009
  Serious: Yes (Life-Threatening, Hospitalization)
  Sender: FDA-Public Use
  Company Number: None

PATIENT
  Age: 25 Year
  Sex: Female
  Weight: 52.7 kg

DRUGS (3)
  1. ACETAMINOPHEN [Suspect]
     Indication: OVERDOSE
     Dosage: 10GM PO ONE DAILY
     Route: 048
     Dates: start: 20081204
  2. ACETAMINOPHEN [Suspect]
     Indication: SUICIDE ATTEMPT
     Dosage: 10GM PO ONE DAILY
     Route: 048
     Dates: start: 20081204
  3. APRI [Concomitant]

REACTIONS (3)
  - ALANINE AMINOTRANSFERASE INCREASED [None]
  - ALCOHOL POISONING [None]
  - ASPARTATE AMINOTRANSFERASE INCREASED [None]
